FAERS Safety Report 13000240 (Version 1)
Quarter: 2016Q4

REPORT INFORMATION
  Report Type: Spontaneous
  Country: US (occurrence: US)
  Receive Date: 20161205
  Receipt Date: 20161205
  Transmission Date: 20170207
  Serious: Yes (Other)
  Sender: FDA-Public Use
  Company Number: US-CELGENEUS-USA-2016120597

PATIENT
  Age: 76 Year
  Sex: Female

DRUGS (2)
  1. POMALYST [Suspect]
     Active Substance: POMALIDOMIDE
     Indication: PLASMA CELL MYELOMA
     Dosage: 2MG
     Route: 048
     Dates: start: 201605
  2. POMALYST [Suspect]
     Active Substance: POMALIDOMIDE
     Dosage: 2MG
     Route: 048
     Dates: start: 20160809

REACTIONS (1)
  - Osteolysis [Not Recovered/Not Resolved]

NARRATIVE: CASE EVENT DATE: 20161110
